FAERS Safety Report 21997877 (Version 2)
Quarter: 2023Q1

REPORT INFORMATION
  Report Type: Spontaneous
  Country: US (occurrence: US)
  Receive Date: 20230216
  Receipt Date: 20230319
  Transmission Date: 20230418
  Serious: Yes (Other)
  Sender: FDA-Public Use
  Company Number: US-SANOFI-01487641

PATIENT
  Age: 49 Year
  Sex: Male

DRUGS (1)
  1. LANTUS [Suspect]
     Active Substance: INSULIN GLARGINE
     Indication: Type 2 diabetes mellitus
     Dosage: 25 IU, BID
     Dates: start: 2006

REACTIONS (11)
  - Neuropathy peripheral [Unknown]
  - Coronary artery bypass [Unknown]
  - Bipolar disorder [Unknown]
  - Attention deficit hyperactivity disorder [Unknown]
  - Skin ulcer [Unknown]
  - Discharge [Unknown]
  - Vein disorder [Unknown]
  - Nodule [Unknown]
  - Blood glucose fluctuation [Unknown]
  - Drug ineffective [Unknown]
  - Inappropriate schedule of product administration [Unknown]
